FAERS Safety Report 6604579-0 (Version None)
Quarter: 2010Q1

REPORT INFORMATION
  Report Type: 
  Country: None (occurrence: None)
  Receive Date: 20100226
  Receipt Date: 20091208
  Transmission Date: 20100710
  Serious: No
  Sender: FDA-Public Use
  Company Number: A0834129A

PATIENT
  Sex: Female

DRUGS (3)
  1. LAMICTAL CD [Suspect]
     Indication: DEPRESSION
     Route: 048
  2. SEROQUEL [Concomitant]
  3. XANAX [Concomitant]

REACTIONS (1)
  - RASH [None]
